FAERS Safety Report 17697469 (Version 1)
Quarter: 2020Q2

REPORT INFORMATION
  Report Type: Spontaneous
  Country: ES (occurrence: ES)
  Receive Date: 20200423
  Receipt Date: 20200423
  Transmission Date: 20200714
  Serious: Yes (Hospitalization)
  Sender: FDA-Public Use
  Company Number: ES-TEVA-2020-ES-1226211

PATIENT
  Age: 63 Year
  Sex: Male

DRUGS (3)
  1. TOCILIZUMAB (8289A) [Suspect]
     Active Substance: TOCILIZUMAB
     Indication: CORONAVIRUS INFECTION
     Dosage: 600 MG
     Route: 042
     Dates: start: 20200403, end: 20200403
  2. DOLQUINE 200 MG COMPRIMIDOS RECUBIERTOS, 30 COMPRIMIDOS [Suspect]
     Active Substance: HYDROXYCHLOROQUINE SULFATE
     Indication: CORONAVIRUS INFECTION
     Dosage: 400MG
     Route: 048
     Dates: start: 20200402, end: 20200406
  3. AZITROMICINA (7019A) [Suspect]
     Active Substance: AZITHROMYCIN
     Indication: CORONAVIRUS INFECTION
     Dosage: 500 MG DAILY
     Route: 048
     Dates: start: 20200402, end: 20200404

REACTIONS (2)
  - Condition aggravated [Unknown]
  - Hepatitis [Unknown]

NARRATIVE: CASE EVENT DATE: 20200407
